FAERS Safety Report 5711091-X (Version None)
Quarter: 2008Q2

REPORT INFORMATION
  Report Type: 
  Country: None (occurrence: None)
  Receive Date: 20080421
  Receipt Date: 20080411
  Transmission Date: 20081010
  Serious: Yes (Hospitalization, Other)
  Sender: FDA-Public Use
  Company Number: AU-AVENTIS-200813313GDDC

PATIENT
  Age: 48 Year
  Sex: Male

DRUGS (2)
  1. LANTUS [Suspect]
     Route: 058
     Dates: start: 20071116
  2. AUTOPEN INSULIN INJECTION PEN [Suspect]

REACTIONS (1)
  - GASTROINTESTINAL NEOPLASM [None]
